FAERS Safety Report 15309058 (Version 4)
Quarter: 2021Q2

REPORT INFORMATION
  Report Type: Spontaneous
  Country: FR (occurrence: FR)
  Receive Date: 20180823
  Receipt Date: 20210427
  Transmission Date: 20210716
  Serious: Yes (Hospitalization, Other)
  Sender: FDA-Public Use
  Company Number: FR-SUN PHARMACEUTICAL INDUSTRIES LTD-2018R1-182066

PATIENT
  Age: 51 Year
  Sex: Female

DRUGS (5)
  1. NECYRANE, SOLUTION FOR NASAL PULVERIZATION [Suspect]
     Active Substance: RITIOMETAN
     Indication: TONSILLITIS
     Dosage: 6 DF, DAILY, 2 PULVERIZATION 3 X PER DAY
     Route: 045
     Dates: start: 20171207, end: 20171207
  2. HEXASPRAY, MOUTHSPRAY IN PRESSURIZED BOTTLE [Suspect]
     Active Substance: BICLOTYMOL
     Indication: TONSILLITIS
     Dosage: 6 DF, DAILY, 2 PULVERIZATION 3 X PER DAY
     Route: 002
     Dates: start: 20171207, end: 20171207
  3. AMOXICILLINE [Suspect]
     Active Substance: AMOXICILLIN
     Indication: TONSILLITIS
     Dosage: 2 G, DAILY
     Route: 048
     Dates: start: 20171207, end: 20171207
  4. PARACETAMOL [Suspect]
     Active Substance: ACETAMINOPHEN
     Indication: TONSILLITIS
     Dosage: 3 G, DAILY
     Route: 048
     Dates: start: 20171207, end: 20171207
  5. DIMETANE SUGAR FREE 133MG/100 ML, SYRUP [Suspect]
     Active Substance: BROMPHENIRAMINE MALEATE\PHOLCODINE
     Indication: TONSILLITIS
     Dosage: 3 DF, DAILY, 1 SOUP SPOON 3 X PER DAY
     Route: 048
     Dates: start: 20171207, end: 20171207

REACTIONS (4)
  - Urticaria [Recovered/Resolved]
  - Hypersensitivity [Recovered/Resolved]
  - Paraesthesia [Recovered/Resolved]
  - Chest discomfort [Recovered/Resolved]

NARRATIVE: CASE EVENT DATE: 20171207
